FAERS Safety Report 19822215 (Version 1)
Quarter: 2021Q3

REPORT INFORMATION
  Report Type: Spontaneous
  Country: US (occurrence: US)
  Receive Date: 20210909
  Receipt Date: 20210909
  Transmission Date: 20211014
  Serious: Yes (Hospitalization)
  Sender: FDA-Public Use
  Company Number: None

PATIENT
  Age: 56 Year
  Sex: Female
  Weight: 113.2 kg

DRUGS (34)
  1. ACETAMINOPHEN. [Concomitant]
     Active Substance: ACETAMINOPHEN
  2. NORVASC [Concomitant]
     Active Substance: AMLODIPINE BESYLATE
  3. COLACE [Concomitant]
     Active Substance: DOCUSATE SODIUM
  4. ZOFRAN [Concomitant]
     Active Substance: ONDANSETRON HYDROCHLORIDE
  5. SEVELAMER [Concomitant]
     Active Substance: SEVELAMER
  6. TRAMADOL. [Concomitant]
     Active Substance: TRAMADOL
  7. VITAMIN B [Concomitant]
     Active Substance: VITAMIN B
  8. FUROSEMIDE. [Concomitant]
     Active Substance: FUROSEMIDE
  9. MAGOX [Concomitant]
  10. PROGRAF [Concomitant]
     Active Substance: TACROLIMUS
  11. PYRIDOXINE [Concomitant]
     Active Substance: PYRIDOXINE
  12. NORCO [Concomitant]
     Active Substance: ACETAMINOPHEN\HYDROCODONE BITARTRATE
  13. PRILOSEC [Concomitant]
     Active Substance: OMEPRAZOLE MAGNESIUM
  14. PROBIOTIC [Concomitant]
     Active Substance: PROBIOTICS NOS
  15. MAVYRET [Suspect]
     Active Substance: GLECAPREVIR\PIBRENTASVIR
     Indication: HEPATITIS C
     Route: 048
     Dates: start: 20200415, end: 20200710
  16. METOCLOPRAMIDE. [Concomitant]
     Active Substance: METOCLOPRAMIDE
  17. POLYETHYLENE GLYCOL [Concomitant]
     Active Substance: POLYETHYLENE GLYCOLS
  18. VALGANCICLOVIR. [Concomitant]
     Active Substance: VALGANCICLOVIR
  19. XANAX [Concomitant]
     Active Substance: ALPRAZOLAM
  20. ASPIRIN. [Concomitant]
     Active Substance: ASPIRIN
  21. VITAMIN D3 [Concomitant]
     Active Substance: CHOLECALCIFEROL
  22. KLONOPIN [Concomitant]
     Active Substance: CLONAZEPAM
  23. ATORVASTATIN [Concomitant]
     Active Substance: ATORVASTATIN
  24. BASAGLAR [Concomitant]
     Active Substance: INSULIN GLARGINE
  25. DAPSONE. [Concomitant]
     Active Substance: DAPSONE
  26. LANTUS [Concomitant]
     Active Substance: INSULIN GLARGINE
  27. NITROGLYCERIN. [Concomitant]
     Active Substance: NITROGLYCERIN
  28. LYRICA [Concomitant]
     Active Substance: PREGABALIN
  29. CARVEDILOL. [Concomitant]
     Active Substance: CARVEDILOL
  30. PRAVASTATIN. [Concomitant]
     Active Substance: PRAVASTATIN
  31. CINACALCET. [Concomitant]
     Active Substance: CINACALCET
  32. FAMOTIDINE. [Concomitant]
     Active Substance: FAMOTIDINE
  33. CARDENE [Concomitant]
     Active Substance: NICARDIPINE HYDROCHLORIDE
  34. PLAQUENIL [Concomitant]
     Active Substance: HYDROXYCHLOROQUINE SULFATE

REACTIONS (5)
  - Kidney transplant rejection [None]
  - Anaemia [None]
  - Anaemia of chronic disease [None]
  - Fluid overload [None]
  - Haemodialysis [None]

NARRATIVE: CASE EVENT DATE: 20210720
